FAERS Safety Report 7505709-9 (Version None)
Quarter: 2011Q2

REPORT INFORMATION
  Report Type: 
  Country: None (occurrence: None)
  Receive Date: 20110526
  Receipt Date: 20110520
  Transmission Date: 20111010
  Serious: Yes (Other)
  Sender: FDA-Public Use
  Company Number: GB-PFIZER INC-2011110012

PATIENT
  Age: 66 Year
  Sex: Female

DRUGS (3)
  1. PHENYTOIN SODIUM [Suspect]
     Dosage: UNK
     Dates: start: 20110510, end: 20110516
  2. LEVETIRACETAM [Concomitant]
     Indication: CONVULSION
  3. CO-BENELDOPA [Concomitant]

REACTIONS (1)
  - PURPLE GLOVE SYNDROME [None]
